FAERS Safety Report 8226303-0 (Version None)
Quarter: 2012Q1

REPORT INFORMATION
  Report Type: 
  Country: None (occurrence: None)
  Receive Date: 20120321
  Receipt Date: 20120316
  Transmission Date: 20120608
  Serious: Yes (Hospitalization, Other)
  Sender: FDA-Public Use
  Company Number: US-MERCK-1201USA03101

PATIENT
  Age: 69 Year
  Sex: Male
  Weight: 74 kg

DRUGS (7)
  1. GLIPIZIDE [Concomitant]
     Indication: TYPE 2 DIABETES MELLITUS
     Route: 048
  2. METFORMIN [Concomitant]
     Indication: TYPE 2 DIABETES MELLITUS
     Route: 048
  3. THIAMINE [Concomitant]
     Indication: CARDIAC DISORDER
     Route: 048
  4. IMDUR [Concomitant]
     Indication: CARDIAC DISORDER
     Route: 048
  5. JANUVIA [Suspect]
     Route: 048
     Dates: start: 20111127, end: 20111208
  6. ASPIRIN [Concomitant]
     Indication: CARDIAC DISORDER
     Route: 048
  7. JANUVIA [Suspect]
     Indication: TYPE 2 DIABETES MELLITUS
     Route: 048
     Dates: start: 20111127, end: 20111208

REACTIONS (2)
  - PANCREATITIS [None]
  - LOSS OF CONSCIOUSNESS [None]
